FAERS Safety Report 19053941 (Version 1)
Quarter: 2021Q1

REPORT INFORMATION
  Report Type: Spontaneous
  Country: DE (occurrence: DE)
  Receive Date: 20210324
  Receipt Date: 20210324
  Transmission Date: 20210420
  Serious: Yes (Other)
  Sender: FDA-Public Use
  Company Number: DE-SAMSUNG BIOEPIS-SB-2021-05577

PATIENT
  Age: 55 Year
  Sex: Female

DRUGS (2)
  1. BENEPALI [Suspect]
     Active Substance: ETANERCEPT
     Indication: RHEUMATIC DISORDER
     Route: 058
  2. BENEPALI [Suspect]
     Active Substance: ETANERCEPT
     Indication: POLYARTHRITIS

REACTIONS (4)
  - Mass [Unknown]
  - Arthritis [Unknown]
  - Product use in unapproved indication [Unknown]
  - Rheumatic disorder [Unknown]
